FAERS Safety Report 6274887-4 (Version None)
Quarter: 2009Q3

REPORT INFORMATION
  Report Type: 
  Country: None (occurrence: None)
  Receive Date: 20090717
  Receipt Date: 20090704
  Transmission Date: 20100115
  Serious: Yes (Other)
  Sender: FDA-Public Use
  Company Number: ADE2009-0716

PATIENT
  Age: 55 Year
  Sex: Male
  Weight: 83 kg

DRUGS (1)
  1. SIMVASTATIN [Suspect]
     Dosage: 40MG - ORAL
     Route: 048

REACTIONS (4)
  - ARTHRALGIA [None]
  - FATIGUE [None]
  - LISTLESS [None]
  - PAIN IN EXTREMITY [None]
